FAERS Safety Report 22141692 (Version 5)
Quarter: 2024Q1

REPORT INFORMATION
  Report Type: Spontaneous
  Country: US (occurrence: US)
  Receive Date: 20230327
  Receipt Date: 20240115
  Transmission Date: 20240410
  Serious: No
  Sender: FDA-Public Use
  Company Number: US-PFIZER INC-PV202300054894

PATIENT
  Age: 45 Year
  Sex: Female

DRUGS (1)
  1. XELJANZ [Suspect]
     Active Substance: TOFACITINIB CITRATE
     Dosage: UNK

REACTIONS (5)
  - Hyperaesthesia teeth [Recovered/Resolved]
  - Taste disorder [Recovered/Resolved]
  - Blood cholesterol increased [Unknown]
  - Dry mouth [Not Recovered/Not Resolved]
  - Headache [Unknown]
